FAERS Safety Report 18913135 (Version 2)
Quarter: 2021Q1

REPORT INFORMATION
  Report Type: Report from Study
  Country: None (occurrence: US)
  Receive Date: 20210219
  Receipt Date: 20210303
  Transmission Date: 20210420
  Serious: Yes (Death, Hospitalization)
  Sender: FDA-Public Use
  Company Number: US-ABBVIE-21K-163-3719816-00

PATIENT
  Age: 64 Year
  Sex: Male

DRUGS (3)
  1. FENOFIBRATE. [Concomitant]
     Active Substance: FENOFIBRATE
     Indication: HYPERLIPIDAEMIA
  2. LIPITOR [Concomitant]
     Active Substance: ATORVASTATIN CALCIUM
     Indication: HYPERLIPIDAEMIA
  3. HUMIRA [Suspect]
     Active Substance: ADALIMUMAB
     Indication: RHEUMATOID ARTHRITIS
     Dosage: CITRATE FREE
     Route: 058
     Dates: start: 20200106, end: 20210106

REACTIONS (5)
  - Acute respiratory distress syndrome [Fatal]
  - COVID-19 [Fatal]
  - Anxiety [Unknown]
  - Pneumonia [Fatal]
  - Bronchitis [Recovered/Resolved]

NARRATIVE: CASE EVENT DATE: 20210106
